FAERS Safety Report 22210614 (Version 1)
Quarter: 2023Q2

REPORT INFORMATION
  Report Type: Report from Study
  Country: TR (occurrence: TR)
  Receive Date: 20230414
  Receipt Date: 20230414
  Transmission Date: 20230721
  Serious: Yes (Death, Other)
  Sender: FDA-Public Use
  Company Number: TR-ABBVIE-4727751

PATIENT
  Sex: Female

DRUGS (3)
  1. CARBIDOPA\LEVODOPA [Suspect]
     Active Substance: CARBIDOPA\LEVODOPA
     Indication: Parkinson^s disease
     Dosage: MORNING DOSE (ML): 3.00 CONTINUOUS DOSE (ML): 2.00 EXTRA DOSE (ML): 1.00
     Dates: start: 20230315, end: 20230406
  2. CARBIDOPA\LEVODOPA [Suspect]
     Active Substance: CARBIDOPA\LEVODOPA
  3. Levodopa + Carbidopa (DOPADEX SR) [Concomitant]
     Indication: Parkinson^s disease
     Dosage: 50 MILLIGRAM
     Route: 048
     Dates: end: 20230406

REACTIONS (1)
  - Meningitis [Fatal]
